FAERS Safety Report 8800881 (Version 2)
Quarter: 2013Q1

REPORT INFORMATION
  Report Type: Spontaneous
  Country: US (occurrence: US)
  Receive Date: 20120921
  Receipt Date: 20130108
  Transmission Date: 20140127
  Serious: Yes (Hospitalization, Other)
  Sender: FDA-Public Use
  Company Number: US-PFIZER INC-2012229711

PATIENT
  Age: 68 Year
  Sex: Female
  Weight: 57.14 kg

DRUGS (22)
  1. REVATIO [Suspect]
     Indication: PULMONARY ARTERIAL HYPERTENSION
     Dosage: UNK
  2. VIAGRA [Suspect]
     Indication: PULMONARY ARTERIAL HYPERTENSION
     Dosage: 100 MG, (ONE-HALF) TAB, BID
     Route: 048
     Dates: start: 200608
  3. REMODULIN [Suspect]
     Indication: PULMONARY ARTERIAL HYPERTENSION
     Dosage: 180 UG/KG DAILY (0.125 UG/KG, 1 IN 1 MIN)
     Route: 058
     Dates: start: 20080422, end: 20120831
  4. EPOPROSTENOL [Suspect]
     Dosage: UNK
     Route: 042
  5. TRACLEER [Suspect]
     Indication: PULMONARY ARTERIAL HYPERTENSION
     Dosage: UNK
  6. COUMADINE [Concomitant]
     Dosage: UNK
  7. ALBUTEROL [Concomitant]
     Dosage: 90 UG, 2PUFFS
  8. ATORVASTATIN [Concomitant]
     Dosage: 10 MG, DAILY
     Route: 048
  9. ZITHROMAX [Concomitant]
     Dosage: 250 MG, UNK
     Route: 048
  10. BOSENTAN [Concomitant]
     Dosage: 125 MG, 2X/DAY
     Route: 048
  11. DIPHENHYDRAMINE [Concomitant]
     Dosage: 25 MG, AS NEEDED
     Route: 048
  12. FERROUS SULFATE [Concomitant]
     Dosage: 324 MG, DAILY
     Route: 048
  13. FLONASE [Concomitant]
     Dosage: 2 SPRAYS DAILY
  14. FUROSEMIDE [Concomitant]
     Dosage: 20 MG ORAL TABLET 2 TAB, 40 MG ORALLY DAILY.
  15. MUCINEX [Concomitant]
     Dosage: 600 MG, EVERY 12 HOURS AS NEEDED
     Route: 048
  16. LIDODERM [Concomitant]
     Dosage: 5 %, 1 PATCH TOPICAL , AS DIRECTED , AS NEEDED
     Route: 061
  17. OMEPRAZOLE [Concomitant]
     Dosage: 20 MG, 2X/DAY
     Route: 048
  18. ZOFRAN [Concomitant]
     Dosage: 4 MG, EVERY 4 HRS
     Route: 060
  19. EMETROL [Concomitant]
     Dosage: 1 TBSP AT BEDTIME
  20. POTASSIUM CHLORIDE [Concomitant]
     Dosage: 10 MEQ ORAL CAP, EXTENDED RELEASE): 6 CAP ORALLY DAILY
     Route: 048
  21. HYDROCHLOROTHIAZIDE WITH TRIAMTERENE [Concomitant]
     Dosage: 37.5 MG-25 MG 1 TAB ORALLY DAILY
     Route: 048
  22. WARFARIN [Concomitant]
     Dosage: 5 MG ORAL TABLET 1.5 TAB MWF AND 1 TAB ALL OTHER DAYS PO DAILY 30 DAY(S)
     Route: 048

REACTIONS (4)
  - Pulmonary arterial hypertension [Recovering/Resolving]
  - Condition aggravated [Recovering/Resolving]
  - Pulmonary arterial pressure increased [Not Recovered/Not Resolved]
  - Off label use [Unknown]
